FAERS Safety Report 13020623 (Version 1)
Quarter: 2016Q4

REPORT INFORMATION
  Report Type: Spontaneous
  Country: TR (occurrence: TR)
  Receive Date: 20161212
  Receipt Date: 20161212
  Transmission Date: 20170207
  Serious: Yes (Life-Threatening, Other)
  Sender: FDA-Public Use
  Company Number: TR-SA-2016SA224837

PATIENT
  Age: 41 Year
  Sex: Female

DRUGS (4)
  1. SEFOTAK [Suspect]
     Active Substance: CEFOTAXIME SODIUM
     Indication: RESPIRATORY TRACT INFECTION
     Dosage: FORM- AMPOULE
     Route: 042
     Dates: start: 20161110, end: 20161110
  2. AVIL [Concomitant]
     Active Substance: PHENIRAMINE
     Indication: RESPIRATORY TRACT INFECTION
     Dosage: ONE AMPOULE
     Route: 042
     Dates: start: 20161110, end: 20161110
  3. NOVALGIN [Concomitant]
     Active Substance: METAMIZOLE SODIUM
     Indication: RESPIRATORY TRACT INFECTION
     Dosage: ONE AMPOULE
     Route: 042
     Dates: start: 20161110, end: 20161110
  4. BEMIKS [Concomitant]
     Indication: RESPIRATORY TRACT INFECTION
     Dosage: ONE AMPOULE
     Route: 042
     Dates: start: 20161110, end: 20161110

REACTIONS (3)
  - Hypotension [Recovered/Resolved]
  - Tachycardia [Recovered/Resolved]
  - Dyspnoea [Recovered/Resolved]

NARRATIVE: CASE EVENT DATE: 20161110
